FAERS Safety Report 8816498 (Version 1)
Quarter: 2012Q4

REPORT INFORMATION
  Report Type: Spontaneous
  Country: DK (occurrence: None)
  Receive Date: 20120927
  Receipt Date: 20120927
  Transmission Date: 20130627
  Serious: Yes (Other)
  Sender: FDA-Public Use
  Company Number: 2012MA011622

PATIENT
  Age: 17 Year
  Sex: Female

DRUGS (3)
  1. RAMIPRIL [Suspect]
     Indication: HYPERTENSION
     Route: 048
     Dates: start: 201202, end: 201203
  2. NOVORAPID [Concomitant]
  3. CARBAMAZEPINE [Concomitant]

REACTIONS (3)
  - Dysphagia [None]
  - Lip swelling [None]
  - Aphthous stomatitis [None]
